FAERS Safety Report 11070732 (Version 3)
Quarter: 2015Q2

REPORT INFORMATION
  Report Type: Report from Study
  Country: US (occurrence: US)
  Receive Date: 20150427
  Receipt Date: 20150528
  Transmission Date: 20150821
  Serious: Yes (Hospitalization)
  Sender: FDA-Public Use
  Company Number: US-ACTELION-A-NJ2015-116747

PATIENT
  Age: 56 Year
  Sex: Female

DRUGS (4)
  1. VELETRI [Suspect]
     Active Substance: EPOPROSTENOL
     Indication: PULMONARY ARTERIAL HYPERTENSION
     Dosage: 25 NG/KG, PER MIN
     Route: 042
     Dates: start: 20140613
  2. ADCIRCA [Concomitant]
     Active Substance: TADALAFIL
  3. PREDNISONE. [Concomitant]
     Active Substance: PREDNISONE
     Dosage: 10 MG, QD
  4. ASPIRIN. [Concomitant]
     Active Substance: ASPIRIN

REACTIONS (4)
  - Blood culture positive [Recovered/Resolved]
  - Medical device change [Recovered/Resolved]
  - Spinal fracture [Unknown]
  - Catheter site infection [Recovered/Resolved]

NARRATIVE: CASE EVENT DATE: 20150415
